FAERS Safety Report 13227627 (Version 1)
Quarter: 2017Q1

REPORT INFORMATION
  Report Type: Report from Study
  Country: US (occurrence: US)
  Receive Date: 20170213
  Receipt Date: 20170213
  Transmission Date: 20170428
  Serious: Yes (Other)
  Sender: FDA-Public Use
  Company Number: US-MYLANLABS-2017M1007778

PATIENT

DRUGS (5)
  1. SODIUM CHLORIDE. [Concomitant]
     Active Substance: SODIUM CHLORIDE
     Indication: VEHICLE SOLUTION USE
     Dosage: 0.9%
     Route: 041
  2. DEXAMETHASONE. [Concomitant]
     Active Substance: DEXAMETHASONE
     Indication: PREMEDICATION
     Dosage: 20MG
     Route: 041
  3. FLUOROURACIL. [Suspect]
     Active Substance: FLUOROURACIL
     Indication: GASTROOESOPHAGEAL CANCER
     Dosage: 750 MG/M2/DAY FOR 4 DAYS
     Route: 041
  4. CISPLATIN. [Suspect]
     Active Substance: CISPLATIN
     Indication: GASTROOESOPHAGEAL CANCER
     Dosage: 75 MG/M2
     Route: 041
  5. OBLIMERSEN [Suspect]
     Active Substance: OBLIMERSEN
     Indication: GASTROOESOPHAGEAL CANCER
     Dosage: 5 MG/KG/DAY FOR 7 DAYS
     Route: 041

REACTIONS (4)
  - Hypokalaemia [Unknown]
  - Dizziness [Unknown]
  - Fatigue [Unknown]
  - Dysphagia [Unknown]
